FAERS Safety Report 17225150 (Version 1)
Quarter: 2020Q1

REPORT INFORMATION
  Report Type: Spontaneous
  Country: US (occurrence: US)
  Receive Date: 20200102
  Receipt Date: 20200102
  Transmission Date: 20200409
  Serious: Yes (Hospitalization)
  Sender: FDA-Public Use
  Company Number: US-STRONGBRIDGE BIOPHARMA-2018-STR-000402

PATIENT
  Age: 28 Year

DRUGS (2)
  1. KEVEYIS [Suspect]
     Active Substance: DICHLORPHENAMIDE
     Dosage: 50 MG, BID
  2. KEVEYIS [Suspect]
     Active Substance: DICHLORPHENAMIDE
     Indication: FAMILIAL PERIODIC PARALYSIS
     Dosage: 50 MG TWICE DAILY
     Route: 048
     Dates: start: 20180808

REACTIONS (2)
  - Nephrolithiasis [Recovered/Resolved]
  - Nephrolithiasis [None]

NARRATIVE: CASE EVENT DATE: 20181116
